FAERS Safety Report 11680403 (Version 2)
Quarter: 2015Q4

REPORT INFORMATION
  Report Type: Spontaneous
  Country: US (occurrence: US)
  Receive Date: 20151027
  Receipt Date: 20151104
  Transmission Date: 20160304
  Serious: No
  Sender: FDA-Public Use
  Company Number: US-ELI_LILLY_AND_COMPANY-US201008003927

PATIENT
  Age: 76 Year
  Sex: Male

DRUGS (25)
  1. THYROID [Concomitant]
     Active Substance: LEVOTHYROXINE\LIOTHYRONINE
  2. VITAMIN D [Concomitant]
     Active Substance: CHOLECALCIFEROL
     Dosage: 1.25 MG, UNK
  3. FORTEO [Suspect]
     Active Substance: TERIPARATIDE
     Dosage: 20 UG, DAILY (1/D)
     Dates: start: 201101
  4. FORTEO [Suspect]
     Active Substance: TERIPARATIDE
     Dosage: 20 UG, DAILY (1/D)
     Dates: start: 20101106
  5. FISH OIL [Concomitant]
     Active Substance: FISH OIL
  6. ALLOPURINOL. [Concomitant]
     Active Substance: ALLOPURINOL
  7. POTASSIUM [Concomitant]
     Active Substance: POTASSIUM
  8. ASPIRIN. [Concomitant]
     Active Substance: ASPIRIN
  9. POLYETHYLENE GLYCOL [Concomitant]
     Active Substance: POLYETHYLENE GLYCOLS
  10. FORTEO [Suspect]
     Active Substance: TERIPARATIDE
     Dosage: 20 UG, DAILY (1/D)
     Dates: end: 201010
  11. PREDNISONE. [Concomitant]
     Active Substance: PREDNISONE
  12. FOLIC ACID. [Concomitant]
     Active Substance: FOLIC ACID
  13. PROBIOTICA [Concomitant]
     Active Substance: PROBIOTICS NOS
  14. TRIAMTERENE. [Concomitant]
     Active Substance: TRIAMTERENE
  15. FORTEO [Suspect]
     Active Substance: TERIPARATIDE
     Indication: OSTEOPOROSIS
     Dosage: 20 UG, DAILY (1/D)
     Dates: start: 20100110
  16. MAXZIDE [Concomitant]
     Active Substance: HYDROCHLOROTHIAZIDE\TRIAMTERENE
  17. GABAPENTIN. [Concomitant]
     Active Substance: GABAPENTIN
  18. TRAMADOL. [Concomitant]
     Active Substance: TRAMADOL
     Indication: PAIN
  19. CENTRUM SILVER [Concomitant]
     Active Substance: MINERALS\VITAMINS
  20. METHOTREXATE [Concomitant]
     Active Substance: METHOTREXATE
  21. REMICADE [Concomitant]
     Active Substance: INFLIXIMAB
  22. FORTEO [Suspect]
     Active Substance: TERIPARATIDE
     Dosage: 20 UG, DAILY (1/D)
     Dates: end: 20100618
  23. COZAAR [Concomitant]
     Active Substance: LOSARTAN POTASSIUM
  24. CALCIUM 600 PLUS VITAMIN D [Concomitant]
     Active Substance: CALCIUM CARBONATE\VITAMIN D
  25. ANTIDIARRHEAL [Concomitant]

REACTIONS (2)
  - Diverticulum [Unknown]
  - Diarrhoea [Not Recovered/Not Resolved]

NARRATIVE: CASE EVENT DATE: 201006
